FAERS Safety Report 23160637 (Version 3)
Quarter: 2023Q4

REPORT INFORMATION
  Report Type: Report from Study
  Country: US (occurrence: US)
  Receive Date: 20231108
  Receipt Date: 20231220
  Transmission Date: 20240109
  Serious: Yes (Hospitalization, Other)
  Sender: FDA-Public Use
  Company Number: US-ALXN-A202301150AA

PATIENT
  Sex: Female

DRUGS (1)
  1. ULTOMIRIS [Suspect]
     Active Substance: RAVULIZUMAB-CWVZ
     Indication: Myasthenia gravis
     Dosage: 3300 MILLIGRAM, 8 WEEKS
     Route: 042

REACTIONS (16)
  - Fall [Recovering/Resolving]
  - Femur fracture [Unknown]
  - Hip fracture [Unknown]
  - Tremor [Unknown]
  - Blood pressure fluctuation [Recovered/Resolved]
  - Abdominal pain upper [Unknown]
  - Malaise [Unknown]
  - Burning sensation [Unknown]
  - Speech disorder [Unknown]
  - Dysphagia [Unknown]
  - Balance disorder [Unknown]
  - Feeling of despair [Unknown]
  - Pain [Unknown]
  - Arthralgia [Not Recovered/Not Resolved]
  - Fatigue [Not Recovered/Not Resolved]
  - Fractured sacrum [Unknown]

NARRATIVE: CASE EVENT DATE: 20230128
